FAERS Safety Report 4559004-0 (Version None)
Quarter: 2005Q1

REPORT INFORMATION
  Report Type: 
  Country: None (occurrence: None)
  Receive Date: 20050124
  Receipt Date: 20050113
  Transmission Date: 20050727
  Serious: Yes (Other)
  Sender: FDA-Public Use
  Company Number: PHEH2005US00868

PATIENT
  Age: 46 Year
  Sex: Female

DRUGS (6)
  1. AMARYL [Concomitant]
  2. ACTOS [Concomitant]
  3. DEPAKOTE [Concomitant]
  4. SEROQUEL [Concomitant]
  5. ZOLOFT [Concomitant]
  6. ZELNORM [Suspect]
     Indication: REFLUX OESOPHAGITIS
     Dosage: 6 MG, BID
     Route: 048
     Dates: start: 20041231

REACTIONS (1)
  - BLOOD GLUCOSE INCREASED [None]
